FAERS Safety Report 7272122-1 (Version None)
Quarter: 2011Q1

REPORT INFORMATION
  Report Type: 
  Country: None (occurrence: None)
  Receive Date: 20110128
  Receipt Date: 20110111
  Transmission Date: 20110831
  Serious: Yes (Death)
  Sender: FDA-Public Use
  Company Number: 2011-00068

PATIENT
  Age: 81 Year
  Sex: Male
  Weight: 70 kg

DRUGS (5)
  1. CLARITHROMYCIN [Concomitant]
  2. CLOPIDOGREL HYDROGEN SULPHATE [Concomitant]
  3. OMEPRAZOLE [Concomitant]
  4. SIMVASTATIN [Suspect]
     Indication: MYOCARDIAL ISCHAEMIA
     Dosage: 40 MG (40 MG), ORAL
     Route: 048
  5. BISOPROLOL FUMARATE [Concomitant]

REACTIONS (4)
  - BRONCHOPNEUMONIA [None]
  - RHABDOMYOLYSIS [None]
  - DIALYSIS [None]
  - RENAL FAILURE ACUTE [None]
